FAERS Safety Report 17290512 (Version 4)
Quarter: 2020Q1

REPORT INFORMATION
  Report Type: Report from Study
  Country: GB (occurrence: GB)
  Receive Date: 20200121
  Receipt Date: 20200317
  Transmission Date: 20200409
  Serious: Yes (Death, Hospitalization)
  Sender: FDA-Public Use
  Company Number: GB-ROCHE-1845223

PATIENT
  Age: 50 Year
  Sex: Female

DRUGS (24)
  1. TRASTUZUMAB EMTANSINE [Suspect]
     Active Substance: ADO-TRASTUZUMAB EMTANSINE
     Indication: HER-2 POSITIVE BREAST CANCER
     Route: 042
     Dates: start: 20161123
  2. FILGRASTIM [Concomitant]
     Active Substance: FILGRASTIM
     Route: 058
     Dates: start: 20161123, end: 20170209
  3. PERTUZUMAB. [Suspect]
     Active Substance: PERTUZUMAB
     Dosage: MAINTENANCE DOSE
     Route: 042
     Dates: start: 20160714
  4. CAPECITABINE. [Suspect]
     Active Substance: CAPECITABINE
     Indication: HER-2 POSITIVE BREAST CANCER
     Route: 048
     Dates: start: 20160427, end: 20160525
  5. ENOXAPARIN [Concomitant]
     Active Substance: ENOXAPARIN
     Route: 058
     Dates: start: 20160901, end: 20160903
  6. DAPSONE. [Concomitant]
     Active Substance: DAPSONE
     Route: 048
     Dates: start: 20161218, end: 201711
  7. METOCLOPRAMIDE. [Concomitant]
     Active Substance: METOCLOPRAMIDE
     Indication: VOMITING
     Route: 048
     Dates: start: 20160621, end: 20161026
  8. METOCLOPRAMIDE. [Concomitant]
     Active Substance: METOCLOPRAMIDE
     Route: 042
     Dates: start: 20171021, end: 20171023
  9. PIRITON [Concomitant]
     Active Substance: CHLORPHENIRAMINE MALEATE
     Route: 042
     Dates: start: 20160914, end: 20161026
  10. PERTUZUMAB. [Suspect]
     Active Substance: PERTUZUMAB
     Indication: HER-2 POSITIVE BREAST CANCER
     Dosage: LOADING DOSE
     Route: 042
     Dates: start: 20160620, end: 20160620
  11. DOCETAXEL. [Suspect]
     Active Substance: DOCETAXEL
     Indication: HER-2 POSITIVE BREAST CANCER
     Dosage: LAST DOSE ON 26/OCT/2016
     Route: 042
     Dates: start: 20160621
  12. FUCIDIN [FUSIDIC ACID] [Concomitant]
     Active Substance: FUSIDIC ACID
     Route: 061
     Dates: start: 20171123, end: 20171208
  13. TRASTUZUMAB. [Suspect]
     Active Substance: TRASTUZUMAB
     Dosage: MAINTENANCE DOSE
     Route: 042
     Dates: start: 20160714
  14. METOCLOPRAMIDE. [Concomitant]
     Active Substance: METOCLOPRAMIDE
     Route: 042
     Dates: start: 20170916, end: 20170916
  15. HYDROCORTISONE. [Concomitant]
     Active Substance: HYDROCORTISONE
     Route: 042
     Dates: start: 20160914, end: 20161026
  16. LOPERAMIDE [Concomitant]
     Active Substance: LOPERAMIDE
     Route: 048
  17. TRASTUZUMAB EMTANSINE [Suspect]
     Active Substance: ADO-TRASTUZUMAB EMTANSINE
     Route: 042
     Dates: start: 20170112
  18. TRASTUZUMAB EMTANSINE [Suspect]
     Active Substance: ADO-TRASTUZUMAB EMTANSINE
     Route: 042
     Dates: start: 20170209
  19. TRASTUZUMAB. [Suspect]
     Active Substance: TRASTUZUMAB
     Indication: HER-2 POSITIVE BREAST CANCER
     Dosage: LOADING DOSE
     Route: 042
     Dates: start: 20160620, end: 20160620
  20. NOVORAPID [Concomitant]
     Active Substance: INSULIN ASPART
     Route: 030
  21. ENOXAPARIN [Concomitant]
     Active Substance: ENOXAPARIN
     Route: 058
     Dates: start: 20171119, end: 20171127
  22. LEVEMIR [Concomitant]
     Active Substance: INSULIN DETEMIR
     Dosage: 50 UNIT
     Route: 030
  23. SEPTRIN [Concomitant]
     Active Substance: SULFAMETHOXAZOLE\TRIMETHOPRIM
     Route: 048
     Dates: start: 201612, end: 20161218
  24. VENTOLIN [Concomitant]
     Active Substance: ALBUTEROL SULFATE
     Route: 065

REACTIONS (6)
  - Vomiting [Recovered/Resolved]
  - Oropharyngeal pain [Recovered/Resolved]
  - Neutropenic sepsis [Recovered/Resolved]
  - Vomiting [Recovered/Resolved]
  - Productive cough [Recovered/Resolved]
  - Vomiting [Recovered/Resolved]

NARRATIVE: CASE EVENT DATE: 20160901
